FAERS Safety Report 5024766-5 (Version None)
Quarter: 2006Q2

REPORT INFORMATION
  Report Type: 
  Country: None (occurrence: None)
  Receive Date: 20060426
  Receipt Date: 20060213
  Transmission Date: 20061013
  Serious: Yes (Other)
  Sender: FDA-Public Use
  Company Number: 2006022745

PATIENT
  Age: 76 Year
  Sex: Male
  Weight: 59.8748 kg

DRUGS (10)
  1. LYRICA [Suspect]
     Indication: POST HERPETIC NEURALGIA
     Dosage: 150 MG (50 MG, 3 IN 1 D), ORAL
     Route: 048
     Dates: start: 20060209
  2. TEGRETOL [Suspect]
     Indication: PAIN
  3. HYDROCODONE BITARTRATE [Suspect]
     Indication: PAIN
  4. SINGULAIR [Concomitant]
  5. NIFEDICAL (NIFEDIPINE) [Concomitant]
  6. PRAVACHOL [Concomitant]
  7. AMITRYIPTYLINE (AMITRIPTYLINE) [Concomitant]
  8. FAMOTIDINE [Concomitant]
  9. FLOVENT [Concomitant]
  10. NASONEX [Concomitant]

REACTIONS (5)
  - DRUG INEFFECTIVE [None]
  - MIDDLE INSOMNIA [None]
  - MUSCLE TWITCHING [None]
  - OEDEMA PERIPHERAL [None]
  - PAIN IN EXTREMITY [None]
